FAERS Safety Report 4605847-4 (Version None)
Quarter: 2005Q1

REPORT INFORMATION
  Report Type: 
  Country: None (occurrence: None)
  Receive Date: 20050214
  Receipt Date: 20041018
  Transmission Date: 20050727
  Serious: No
  Sender: FDA-Public Use
  Company Number: USA041081428

PATIENT
  Age: 75 Year
  Sex: Male

DRUGS (5)
  1. CIALIS [Suspect]
     Indication: ERECTILE DYSFUNCTION
     Dosage: 20 MG
     Dates: start: 20041016, end: 20041016
  2. LIPITOR [Concomitant]
  3. PLAVIX (CLOPODOGREL SULFATE) [Concomitant]
  4. ENALAPRIL [Concomitant]
  5. ANTIBIOTIC [Concomitant]

REACTIONS (1)
  - ANORGASMIA [None]
